FAERS Safety Report 6532453-7 (Version None)
Quarter: 2010Q1

REPORT INFORMATION
  Report Type: 
  Country: None (occurrence: None)
  Receive Date: 20100111
  Receipt Date: 20100104
  Transmission Date: 20100710
  Serious: Yes (Disabling)
  Sender: FDA-Public Use
  Company Number: GB-RANBAXY-2009RR-26067

PATIENT
  Sex: Male
  Weight: 81.5 kg

DRUGS (9)
  1. ATORVASTATIN [Suspect]
     Indication: HYPERLIPIDAEMIA
     Dosage: 40 MG, QD
     Route: 048
     Dates: start: 20090107, end: 20090522
  2. ATORVASTATIN [Suspect]
     Indication: TYPE 2 DIABETES MELLITUS
  3. SIMVASTATIN [Suspect]
     Indication: HYPERLIPIDAEMIA
     Dosage: 40 MG, QD
     Route: 048
     Dates: start: 20080114, end: 20090106
  4. SIMVASTATIN [Suspect]
     Indication: TYPE 2 DIABETES MELLITUS
  5. AMLODIPINE [Concomitant]
     Indication: HYPERTENSION
     Dosage: 5 MG, QD
     Route: 048
     Dates: start: 20080211, end: 20080301
  6. EXENATIDE [Concomitant]
     Indication: DIABETES MELLITUS
     Dosage: 10 UG, BID
     Route: 058
     Dates: start: 20080701, end: 20090601
  7. GLICLAZIDE [Concomitant]
     Indication: DIABETES MELLITUS
     Dosage: 80 MG, BID
     Route: 048
     Dates: start: 20080401, end: 20090101
  8. METHYLDOPA [Concomitant]
     Indication: HYPERTENSION
     Dosage: 250 MG, TID
     Route: 048
     Dates: start: 20080301, end: 20080401
  9. PIOGLITAZONE [Concomitant]
     Indication: DIABETES MELLITUS
     Dosage: 45 MG, UNK
     Route: 048
     Dates: start: 20080211, end: 20090701

REACTIONS (2)
  - ALOPECIA [None]
  - ANDROGENETIC ALOPECIA [None]
